FAERS Safety Report 10659777 (Version 2)
Quarter: 2015Q2

REPORT INFORMATION
  Report Type: Spontaneous
  Country: AR (occurrence: AR)
  Receive Date: 20141217
  Receipt Date: 20150408
  Transmission Date: 20150821
  Serious: Yes (Hospitalization, Other)
  Sender: FDA-Public Use
  Company Number: AR-PFIZER INC-2014342811

PATIENT
  Age: 69 Year
  Sex: Male

DRUGS (1)
  1. SUTENT [Suspect]
     Active Substance: SUNITINIB MALATE
     Indication: METASTATIC RENAL CELL CARCINOMA
     Dosage: 37.5 MG, CYCLIC: DAILY, 4 WEEKS ON/2 WEEKS OFF
     Dates: start: 20130307, end: 20150319

REACTIONS (10)
  - Bacterial infection [Recovered/Resolved]
  - Anaemia [Unknown]
  - Pyrexia [Unknown]
  - Liver disorder [Unknown]
  - Metastatic renal cell carcinoma [Unknown]
  - Disease progression [Unknown]
  - Seizure [Recovered/Resolved]
  - Chills [Recovered/Resolved]
  - Device occlusion [Unknown]
  - Bacterial infection [Recovered/Resolved]

NARRATIVE: CASE EVENT DATE: 20141203
